FAERS Safety Report 18533479 (Version 1)
Quarter: 2020Q4

REPORT INFORMATION
  Report Type: Spontaneous
  Country: US (occurrence: US)
  Receive Date: 20201120
  Receipt Date: 20201120
  Transmission Date: 20210114
  Serious: Yes (Other)
  Sender: FDA-Public Use
  Company Number: None

PATIENT
  Age: 7 Year
  Sex: Male
  Weight: 32.4 kg

DRUGS (3)
  1. TAZEMETOSTAT [Suspect]
     Active Substance: TAZEMETOSTAT
     Indication: RHABDOID TUMOUR OF THE KIDNEY
     Route: 048
     Dates: start: 20200807, end: 20201014
  2. TYLENOL [Concomitant]
     Active Substance: ACETAMINOPHEN
  3. PEPCID [Concomitant]
     Active Substance: FAMOTIDINE

REACTIONS (3)
  - Headache [None]
  - Blood bromide increased [None]
  - Therapy interrupted [None]

NARRATIVE: CASE EVENT DATE: 20200916
